APPROVED DRUG PRODUCT: L-GLUTAMINE
Active Ingredient: L-GLUTAMINE
Strength: 5GM/PACKET
Dosage Form/Route: FOR SOLUTION;ORAL
Application: A215647 | Product #001 | TE Code: AA
Applicant: NOVITIUM PHARMA LLC
Approved: Jul 8, 2024 | RLD: No | RS: No | Type: RX